FAERS Safety Report 6276425-9 (Version None)
Quarter: 2009Q3

REPORT INFORMATION
  Report Type: 
  Country: None (occurrence: None)
  Receive Date: 20090720
  Receipt Date: 20080723
  Transmission Date: 20100115
  Serious: Yes (Other)
  Sender: FDA-Public Use
  Company Number: USA-2008-0034079

PATIENT
  Sex: Male

DRUGS (5)
  1. MORPHINE SULFATE [Suspect]
     Indication: DRUG ABUSE
  2. OXYCONTIN [Suspect]
     Indication: DRUG ABUSE
  3. HEROIN (DIAMORPHINE) [Suspect]
     Indication: DRUG ABUSE
  4. FENTANYL-100 [Suspect]
     Indication: DRUG ABUSE
  5. METHADONE HCL [Suspect]
     Indication: DRUG ABUSE

REACTIONS (7)
  - DRUG WITHDRAWAL SYNDROME [None]
  - DYSARTHRIA [None]
  - EUPHORIC MOOD [None]
  - POLYSUBSTANCE DEPENDENCE [None]
  - SEDATION [None]
  - SUBSTANCE ABUSE [None]
  - TREMOR [None]
